FAERS Safety Report 5142794-6 (Version None)
Quarter: 2006Q4

REPORT INFORMATION
  Report Type: 
  Country: None (occurrence: None)
  Receive Date: 20061027
  Receipt Date: 20061012
  Transmission Date: 20070319
  Serious: Yes (Other)
  Sender: FDA-Public Use
  Company Number: US200609007482

PATIENT
  Sex: Female

DRUGS (2)
  1. GEMZAR [Suspect]
     Indication: SMALL INTESTINE CARCINOMA
     Dates: start: 20060801
  2. ASA (ASPIRIN (ACETYLSALICYLIC ACID)) TABLET [Concomitant]

REACTIONS (3)
  - ABDOMINAL PAIN [None]
  - EYE DISORDER [None]
  - PLATELET COUNT INCREASED [None]
